FAERS Safety Report 9096516 (Version 1)
Quarter: 2013Q1

REPORT INFORMATION
  Report Type: Spontaneous
  Country: BR (occurrence: BR)
  Receive Date: 20130211
  Receipt Date: 20130211
  Transmission Date: 20140127
  Serious: Yes (Disabling)
  Sender: FDA-Public Use
  Company Number: BR-ELI_LILLY_AND_COMPANY-BR201301010277

PATIENT
  Age: 49 Year
  Sex: Female

DRUGS (9)
  1. CYMBALTA [Suspect]
     Indication: DEPRESSION
     Dosage: 60 MG, QD
     Route: 065
     Dates: start: 20090310
  2. CYMBALTA [Suspect]
     Dosage: 30 MG, QD
     Route: 065
     Dates: start: 20091117, end: 20111111
  3. CYMBALTA [Suspect]
     Dosage: 120 MG, QD
     Route: 065
     Dates: start: 20111111, end: 20120718
  4. CYMBALTA [Suspect]
     Dosage: 60 MG, QD
     Route: 065
     Dates: start: 20120718, end: 20121003
  5. CYMBALTA [Suspect]
     Dosage: 120 MG, QD
     Route: 065
     Dates: start: 20121003
  6. QUETIAPINA [Concomitant]
     Dosage: 200 MG, QD
     Route: 065
     Dates: start: 20121003
  7. CENTRUM [Concomitant]
     Dosage: UNK, BID
     Route: 065
     Dates: start: 20120521
  8. GLIFAGE [Concomitant]
     Dosage: 500 MG, QD
     Route: 065
     Dates: start: 20121003, end: 20121205
  9. GLIFAGE [Concomitant]
     Dosage: 500 MG, BID
     Route: 065
     Dates: start: 20121205

REACTIONS (7)
  - Depression [Not Recovered/Not Resolved]
  - Osteoarthritis [Not Recovered/Not Resolved]
  - Cervicobrachial syndrome [Not Recovered/Not Resolved]
  - Synovitis [Not Recovered/Not Resolved]
  - Tenosynovitis [Not Recovered/Not Resolved]
  - Chloasma [Not Recovered/Not Resolved]
  - Back pain [Not Recovered/Not Resolved]
